FAERS Safety Report 20666641 (Version 3)
Quarter: 2025Q2

REPORT INFORMATION
  Report Type: Spontaneous
  Country: PT (occurrence: PT)
  Receive Date: 20220403
  Receipt Date: 20250621
  Transmission Date: 20250716
  Serious: Yes (Life-Threatening, Hospitalization, Other)
  Sender: AUROBINDO
  Company Number: PT-Hikma Pharmaceuticals-PT-H14001-22-00772

PATIENT
  Age: 80 Year
  Sex: Male

DRUGS (8)
  1. DIAZEPAM [Suspect]
     Active Substance: DIAZEPAM
     Indication: Tonic convulsion
     Route: 042
  2. DIAZEPAM [Suspect]
     Active Substance: DIAZEPAM
     Indication: Tetanus
  3. DIAZEPAM [Suspect]
     Active Substance: DIAZEPAM
     Indication: Respiratory distress
  4. PHENYTOIN [Suspect]
     Active Substance: PHENYTOIN
     Indication: Respiratory distress
     Route: 065
  5. PHENYTOIN [Suspect]
     Active Substance: PHENYTOIN
     Indication: Tetanus
  6. PHENYTOIN [Suspect]
     Active Substance: PHENYTOIN
     Indication: Tonic convulsion
  7. ASPIRIN [Concomitant]
     Active Substance: ASPIRIN
     Indication: Ischaemic stroke
     Route: 065
  8. ATORVASTATIN [Concomitant]
     Active Substance: ATORVASTATIN
     Indication: Ischaemic stroke
     Route: 065

REACTIONS (2)
  - Drug ineffective [Recovered/Resolved]
  - No adverse event [Unknown]
